FAERS Safety Report 8135878-1 (Version None)
Quarter: 2012Q1

REPORT INFORMATION
  Report Type: 
  Country: None (occurrence: None)
  Receive Date: 20120214
  Receipt Date: 20120207
  Transmission Date: 20120608
  Serious: Yes (Other)
  Sender: FDA-Public Use
  Company Number: FR-GLAXOSMITHKLINE-B0780344A

PATIENT
  Age: 16 Year
  Sex: Male

DRUGS (1)
  1. VENTOLIN [Suspect]
     Indication: OFF LABEL USE
     Route: 061
     Dates: start: 20120201, end: 20120201

REACTIONS (3)
  - THERMAL BURN [None]
  - DRUG ADMINISTERED AT INAPPROPRIATE SITE [None]
  - INTENTIONAL DRUG MISUSE [None]
